FAERS Safety Report 24316136 (Version 1)
Quarter: 2024Q3

REPORT INFORMATION
  Report Type: Spontaneous
  Country: AU (occurrence: AU)
  Receive Date: 20240913
  Receipt Date: 20240913
  Transmission Date: 20241017
  Serious: Yes (Life-Threatening, Hospitalization, Other)
  Sender: RANBAXY
  Company Number: AU-SUN PHARMACEUTICAL INDUSTRIES LTD-2024R1-466223

PATIENT
  Age: 56 Year
  Sex: Female

DRUGS (13)
  1. ANASTROZOLE [Suspect]
     Active Substance: ANASTROZOLE
     Indication: Breast cancer
     Dosage: 1 MILLIGRAM,1 DAY
     Route: 065
  2. APIXABAN [Suspect]
     Active Substance: APIXABAN
     Indication: Product used for unknown indication
     Dosage: 5 MILLIGRAM, 2 EVERY 1 DAY
     Route: 065
  3. ESOMEPRAZOLE [Suspect]
     Active Substance: ESOMEPRAZOLE
     Indication: Product used for unknown indication
     Dosage: 20 MILLIGRAM,2 EVERY 1 DAY
     Route: 065
  4. FAMOTIDINE [Suspect]
     Active Substance: FAMOTIDINE
     Indication: Mast cell activation syndrome
     Dosage: 20 MILLIGRAM,2 EVERY 1 DAY
     Route: 065
  5. LORATADINE [Suspect]
     Active Substance: LORATADINE
     Indication: Mast cell activation syndrome
     Dosage: 20 MILLIGRAM,2 EVERY 1 DAY
     Route: 065
  6. METFORMIN [Suspect]
     Active Substance: METFORMIN HYDROCHLORIDE
     Indication: Diabetes mellitus
     Dosage: 1 GRAM,2 EVERY 1 DAY
     Route: 065
  7. MONTELUKAST [Suspect]
     Active Substance: MONTELUKAST SODIUM
     Indication: Mast cell activation syndrome
     Dosage: 10 MILLIGRAM
     Route: 065
  8. ROSUVASTATIN [Suspect]
     Active Substance: ROSUVASTATIN\ROSUVASTATIN CALCIUM
     Indication: Product used for unknown indication
     Dosage: 10 MILLIGRAM
     Route: 065
  9. ALBUTEROL [Suspect]
     Active Substance: ALBUTEROL
     Indication: Product used for unknown indication
     Dosage: UNK
     Route: 065
  10. COMIRNATY (TOZINAMERAN) [Suspect]
     Active Substance: TOZINAMERAN
     Indication: COVID-19 immunisation
     Dosage: UNK
     Route: 065
  11. NOVORAPID [Suspect]
     Active Substance: INSULIN ASPART
     Indication: Product used for unknown indication
     Dosage: 5 INTERNATIONAL UNIT,3 EVERY 1 DAY
     Route: 065
  12. INSULIN GLARGINE [Suspect]
     Active Substance: INSULIN GLARGINE
     Indication: Product used for unknown indication
     Dosage: 18 INTERNATIONAL UNIT, 2 EVERY 1 DAY
     Route: 065
  13. PHENERGAN [Suspect]
     Active Substance: PROMETHAZINE HYDROCHLORIDE
     Indication: Local reaction
     Dosage: UNK
     Route: 065

REACTIONS (10)
  - Upper respiratory tract infection [Unknown]
  - Anaphylactic reaction [Recovering/Resolving]
  - Pneumonia [Unknown]
  - Pneumonia haemophilus [Unknown]
  - Respiratory failure [Recovering/Resolving]
  - COVID-19 [Unknown]
  - Human rhinovirus test positive [Unknown]
  - Mouth haemorrhage [Unknown]
  - Respiratory syncytial virus test positive [Unknown]
  - Tongue biting [Unknown]

NARRATIVE: CASE EVENT DATE: 20180718
